FAERS Safety Report 21434724 (Version 1)
Quarter: 2022Q4

REPORT INFORMATION
  Report Type: Report from Study
  Country: US (occurrence: US)
  Receive Date: 20221010
  Receipt Date: 20221010
  Transmission Date: 20230112
  Serious: No
  Sender: FDA-Public Use
  Company Number: US-ABBVIE-4139930

PATIENT
  Age: 49 Year
  Sex: Female

DRUGS (3)
  1. SKYRIZI [Suspect]
     Active Substance: RISANKIZUMAB-RZAA
     Indication: Psoriasis
     Dosage: WEEK 0 FORM STRENGTH: 150 MILLIGRAM
     Route: 058
     Dates: start: 202204, end: 202204
  2. SKYRIZI [Suspect]
     Active Substance: RISANKIZUMAB-RZAA
     Indication: Psoriatic arthropathy
     Dosage: FORM STRENGTH: 150 MILLIGRAM
     Route: 058
     Dates: start: 2022
  3. SKYRIZI [Suspect]
     Active Substance: RISANKIZUMAB-RZAA
     Dosage: WEEK 4 FORM STRENGTH: 150 MILLIGRAM
     Route: 058
     Dates: start: 202205, end: 202205

REACTIONS (8)
  - Urinary tract infection [Unknown]
  - Connective tissue disorder [Unknown]
  - Skin disorder [Recovered/Resolved]
  - Psoriasis [Unknown]
  - Therapeutic response shortened [Unknown]
  - Nephrolithiasis [Recovered/Resolved]
  - Arthralgia [Unknown]
  - Food allergy [Unknown]

NARRATIVE: CASE EVENT DATE: 20220901
